FAERS Safety Report 5847196-2 (Version None)
Quarter: 2008Q3

REPORT INFORMATION
  Report Type: 
  Country: None (occurrence: None)
  Receive Date: 20080815
  Receipt Date: 20080812
  Transmission Date: 20090109
  Serious: Yes (Disabling, Other)
  Sender: FDA-Public Use
  Company Number: PHEH2008US06650

PATIENT
  Sex: Female
  Weight: 103.49 kg

DRUGS (4)
  1. RECLAST [Suspect]
     Indication: OSTEOPOROSIS
     Dosage: UNK
     Route: 042
     Dates: start: 20080710, end: 20080710
  2. VICODIN ES [Concomitant]
     Route: 048
  3. RELAFEN [Concomitant]
     Dosage: UNK
  4. BENADRYL ^WARNER-LAMBERT^               /UNK/ [Concomitant]

REACTIONS (4)
  - BACK PAIN [None]
  - CHEST PAIN [None]
  - PRURITUS GENERALISED [None]
  - TREMOR [None]
